FAERS Safety Report 24110039 (Version 2)
Quarter: 2024Q4

REPORT INFORMATION
  Report Type: Spontaneous
  Country: CN (occurrence: CN)
  Receive Date: 20240718
  Receipt Date: 20241028
  Transmission Date: 20250115
  Serious: Yes (Other)
  Sender: NOVARTIS
  Company Number: CN-002147023-NVSC2024CN144617

PATIENT
  Age: 70 Year
  Sex: Male

DRUGS (1)
  1. SECUKINUMAB [Suspect]
     Active Substance: SECUKINUMAB
     Indication: Generalised pustular psoriasis
     Dosage: 300 MG, Q4W (WEEK 0 TO WEEK 4 AND EVERY 4 WEEKS THEREAFTER)
     Route: 065

REACTIONS (1)
  - Leukopenia [Recovered/Resolved]
